FAERS Safety Report 6313335-2 (Version None)
Quarter: 2009Q3

REPORT INFORMATION
  Report Type: 
  Country: None (occurrence: None)
  Receive Date: 20090818
  Receipt Date: 20090807
  Transmission Date: 20100115
  Serious: Yes (Other)
  Sender: FDA-Public Use
  Company Number: B0588885A

PATIENT

DRUGS (1)
  1. ALBENDAZOLE [Suspect]
     Indication: ECHINOCOCCIASIS
     Dosage: 17.2MGK PER DAY
     Route: 048

REACTIONS (1)
  - BLOOD CREATINE PHOSPHOKINASE INCREASED [None]
